FAERS Safety Report 4500957-4 (Version None)
Quarter: 2004Q4

REPORT INFORMATION
  Report Type: 
  Country: None (occurrence: None)
  Receive Date: 20041115
  Receipt Date: 20041104
  Transmission Date: 20050328
  Serious: Yes (Hospitalization)
  Sender: FDA-Public Use
  Company Number: FR-ROCHE-385413

PATIENT
  Age: 2 Year
  Sex: Male
  Weight: 15 kg

DRUGS (3)
  1. VALIUM [Suspect]
     Indication: DRUG USE FOR UNKNOWN INDICATION
     Dosage: DOSING REGIMEN EQUIVALENT TO 10 DROPS PER DAY.
     Route: 048
     Dates: start: 20040928, end: 20040930
  2. ASPEGIC 500 [Suspect]
     Route: 048
     Dates: start: 20040928, end: 20040930
  3. PNEUMONIA VACCINE [Concomitant]
     Dosage: DRUG TRADE NAME REPORTED AS PREVENAR.
     Route: 058
     Dates: start: 20040927

REACTIONS (7)
  - ABNORMAL BEHAVIOUR [None]
  - AFFECTIVE DISORDER [None]
  - BALANCE DISORDER [None]
  - CRYING [None]
  - GAIT DISTURBANCE [None]
  - HYPOTONIA [None]
  - IRRITABILITY [None]
